FAERS Safety Report 4332146-0 (Version None)
Quarter: 2004Q2

REPORT INFORMATION
  Report Type: 
  Country: None (occurrence: None)
  Receive Date: 20040401
  Receipt Date: 20040401
  Transmission Date: 20050107
  Serious: Yes (Hospitalization)
  Sender: FDA-Public Use
  Company Number: None

PATIENT
  Age: 27 Year
  Sex: Female
  Weight: 78.9259 kg

DRUGS (10)
  1. CISPLATIN [Suspect]
     Indication: MALIGNANT MELANOMA
     Dates: start: 20031104, end: 20031108
  2. DTIC 1550 MG X 1 DAY [Suspect]
  3. VINBLASTINE 2.3 MG [Suspect]
  4. IL-2/IINTERF17.1 MG/9 [Suspect]
  5. LEVAQUIN [Concomitant]
  6. PHENERGAN [Concomitant]
  7. ZOFRAN [Concomitant]
  8. MARINOL [Concomitant]
  9. TPN [Concomitant]
  10. IV FUIDS [Concomitant]

REACTIONS (5)
  - DEHYDRATION [None]
  - HAEMOGLOBIN DECREASED [None]
  - NAUSEA [None]
  - PLATELET COUNT DECREASED [None]
  - VOMITING [None]
